FAERS Safety Report 7970836-9 (Version None)
Quarter: 2011Q4

REPORT INFORMATION
  Report Type: 
  Country: None (occurrence: None)
  Receive Date: 20111212
  Receipt Date: 20111206
  Transmission Date: 20120403
  Serious: Yes (Life-Threatening, Hospitalization, Other)
  Sender: FDA-Public Use
  Company Number: US-GLAXOSMITHKLINE-A0950442A

PATIENT
  Age: 47 Year
  Sex: Male
  Weight: 132 kg

DRUGS (4)
  1. HYDROCODONE [Concomitant]
  2. AMLODIPINE [Concomitant]
  3. VOTRIENT [Suspect]
     Indication: RENAL CELL CARCINOMA
     Dosage: 800MG PER DAY
     Dates: start: 20110701, end: 20111001
  4. ZOLOFT [Concomitant]

REACTIONS (1)
  - NODAL RHYTHM [None]
